FAERS Safety Report 7633539-6 (Version None)
Quarter: 2011Q3

REPORT INFORMATION
  Report Type: 
  Country: None (occurrence: None)
  Receive Date: 20110725
  Receipt Date: 20110720
  Transmission Date: 20111222
  Serious: Yes (Death)
  Sender: FDA-Public Use
  Company Number: FR-PFIZER INC-2011165238

PATIENT
  Age: 44 Year
  Sex: Female

DRUGS (4)
  1. CYTARABINE [Suspect]
     Indication: ACUTE MYELOID LEUKAEMIA
     Dosage: 200 MG/M2, 1X/DAY
     Route: 042
     Dates: start: 20080519, end: 20080525
  2. GEMTUZUMAB OZOGAMICIN [Suspect]
     Indication: ACUTE MYELOID LEUKAEMIA
     Dosage: 6 MG/M2, 1X/DAY
     Route: 042
     Dates: start: 20080522, end: 20080522
  3. CERUBIDINE [Suspect]
     Indication: ACUTE MYELOID LEUKAEMIA
     Dosage: 60 MG/M2, 1X/DAY
     Route: 042
     Dates: start: 20080519, end: 20080521
  4. HEPARIN [Concomitant]
     Indication: PROPHYLAXIS

REACTIONS (1)
  - CEREBELLAR HAEMORRHAGE [None]
